FAERS Safety Report 10441899 (Version 2)
Quarter: 2015Q4

REPORT INFORMATION
  Report Type: Spontaneous
  Country: US (occurrence: US)
  Receive Date: 20140909
  Receipt Date: 20151217
  Transmission Date: 20160304
  Serious: Yes (Hospitalization, Other)
  Sender: FDA-Public Use
  Company Number: US-GLAXOSMITHKLINE-A1087498A

PATIENT
  Sex: Female

DRUGS (13)
  1. CLOPIDOGREL [Concomitant]
     Active Substance: CLOPIDOGREL BISULFATE
  2. XANAX [Concomitant]
     Active Substance: ALPRAZOLAM
  3. LAMICTAL [Suspect]
     Active Substance: LAMOTRIGINE
     Indication: MULTIPLE SCLEROSIS
     Dosage: 200 MG, UNK
  4. LAMICTAL XR [Suspect]
     Active Substance: LAMOTRIGINE
     Indication: PRODUCT USED FOR UNKNOWN INDICATION
  5. METOPROLOL [Concomitant]
     Active Substance: METOPROLOL
  6. OXYCONTIN [Concomitant]
     Active Substance: OXYCODONE HYDROCHLORIDE
  7. LAMICTAL [Suspect]
     Active Substance: LAMOTRIGINE
     Indication: MOOD SWINGS
     Dosage: 200 MG, QD
     Route: 048
     Dates: start: 2005
  8. ASPIRIN. [Concomitant]
     Active Substance: ASPIRIN
  9. CELEXA [Concomitant]
     Active Substance: CITALOPRAM HYDROBROMIDE
  10. LEVOTHYROXIN [Concomitant]
     Active Substance: LEVOTHYROXINE
  11. SPIRIVA [Concomitant]
     Active Substance: TIOTROPIUM BROMIDE MONOHYDRATE
  12. NEURONTIN [Concomitant]
     Active Substance: GABAPENTIN
  13. ALBUTEROL. [Concomitant]
     Active Substance: ALBUTEROL

REACTIONS (14)
  - Rib fracture [Unknown]
  - Migraine [Not Recovered/Not Resolved]
  - Sensory disturbance [Unknown]
  - Fall [Unknown]
  - Vulvectomy [Unknown]
  - Myocardial infarction [Unknown]
  - Visual impairment [Unknown]
  - Nodule [Unknown]
  - Cardiac failure congestive [Unknown]
  - Head injury [Unknown]
  - Stent placement [Unknown]
  - Chest pain [Unknown]
  - Drug withdrawal syndrome [Unknown]
  - Squamous cell carcinoma of the vulva [Unknown]

NARRATIVE: CASE EVENT DATE: 2005
